FAERS Safety Report 16590878 (Version 2)
Quarter: 2019Q3

REPORT INFORMATION
  Report Type: Spontaneous
  Country: US (occurrence: US)
  Receive Date: 20190718
  Receipt Date: 20190724
  Transmission Date: 20191004
  Serious: Yes (Hospitalization, Other)
  Sender: FDA-Public Use
  Company Number: US-PFIZER INC-2019304914

PATIENT
  Age: 7 Month
  Sex: Female

DRUGS (4)
  1. BICILLIN C-R 900/300 [Suspect]
     Active Substance: PENICILLIN G BENZATHINE\PENICILLIN G PROCAINE
     Dosage: UNK (300,000 UNITS BENZATHINE PENICILLIN G AND 300,000 UNITS PROCAINE PENICILLIN G IN AQUEOUS SUSPEN
     Route: 030
  2. BICILLIN C-R 900/300 [Suspect]
     Active Substance: PENICILLIN G BENZATHINE\PENICILLIN G PROCAINE
     Indication: RESPIRATORY TRACT INFECTION
     Dosage: 0.6 IU, UNK (SUSPENSION, VOLUME 1 ML)
     Route: 030
  3. PROCAINE BENZYLPENICILLIN [Suspect]
     Active Substance: PENICILLIN G PROCAINE
     Dosage: 300000 IU, UNK (AQUEOUS SUSPENSION, INTRA-ARTERIAL INJECTION)
     Route: 030
  4. PROCAINE BENZYLPENICILLIN [Suspect]
     Active Substance: PENICILLIN G PROCAINE
     Indication: RESPIRATORY TRACT INFECTION
     Dosage: 0.6 IU, UNK (SUSPENSION, VOLUME 1 ML)
     Route: 030

REACTIONS (2)
  - Myelopathy [Recovering/Resolving]
  - Embolia cutis medicamentosa [Recovering/Resolving]
